FAERS Safety Report 9072511 (Version 2)
Quarter: 2013Q1

REPORT INFORMATION
  Report Type: Report from Study
  Country: BR (occurrence: BR)
  Receive Date: 20130207
  Receipt Date: 20130220
  Transmission Date: 20140127
  Serious: Yes (Hospitalization)
  Sender: FDA-Public Use
  Company Number: BR-US-EMD SERONO, INC.-7191399

PATIENT
  Sex: Female

DRUGS (3)
  1. REBIF [Suspect]
     Indication: MULTIPLE SCLEROSIS
     Dates: start: 20090916, end: 201212
  2. REBIF [Suspect]
     Dates: start: 20130130
  3. DORFLEX [Concomitant]
     Indication: PROPHYLAXIS

REACTIONS (3)
  - Road traffic accident [Recovered/Resolved]
  - Insomnia [Recovering/Resolving]
  - Drug dose omission [Recovered/Resolved]
